FAERS Safety Report 15790678 (Version 1)
Quarter: 2019Q1

REPORT INFORMATION
  Report Type: Spontaneous
  Country: US (occurrence: US)
  Receive Date: 20190104
  Receipt Date: 20190104
  Transmission Date: 20190417
  Serious: Yes (Death, Hospitalization)
  Sender: FDA-Public Use
  Company Number: US-BAYER-2019-002207

PATIENT
  Age: 22 Year
  Sex: Male

DRUGS (5)
  1. DEXTROMETHORPHAN [Suspect]
     Active Substance: DEXTROMETHORPHAN
  2. LAMOTRIGINE. [Suspect]
     Active Substance: LAMOTRIGINE
  3. CHLORPHENIRAMINE MALEATE. [Suspect]
     Active Substance: CHLORPHENIRAMINE MALEATE
     Route: 065
  4. BUPROPION. [Suspect]
     Active Substance: BUPROPION
  5. MARIJUANA [Suspect]
     Active Substance: CANNABIS SATIVA SUBSP. INDICA TOP

REACTIONS (2)
  - Toxicity to various agents [Fatal]
  - Intentional overdose [None]
